FAERS Safety Report 24305508 (Version 2)
Quarter: 2025Q1

REPORT INFORMATION
  Report Type: Spontaneous
  Country: JP (occurrence: JP)
  Receive Date: 20240911
  Receipt Date: 20250318
  Transmission Date: 20250408
  Serious: Yes (Hospitalization, Other)
  Sender: TAKEDA
  Company Number: JP-TAKEDA-2024TJP013312

PATIENT
  Age: 7 Decade
  Sex: Female

DRUGS (2)
  1. VPRIV [Suspect]
     Active Substance: VELAGLUCERASE ALFA
     Indication: Gaucher^s disease
     Dosage: 6 INTERNATIONAL UNIT, Q2WEEKS
     Dates: end: 202408
  2. VPRIV [Suspect]
     Active Substance: VELAGLUCERASE ALFA
     Dosage: 6 INTERNATIONAL UNIT, Q2WEEKS

REACTIONS (1)
  - Pneumonia [Recovered/Resolved]
